FAERS Safety Report 7803533-0 (Version None)
Quarter: 2011Q4

REPORT INFORMATION
  Report Type: 
  Country: None (occurrence: None)
  Receive Date: 20111008
  Receipt Date: 20110924
  Transmission Date: 20120403
  Serious: Yes (Hospitalization)
  Sender: FDA-Public Use
  Company Number: US-ELI_LILLY_AND_COMPANY-US201105007997

PATIENT
  Age: 79 Year
  Sex: Female

DRUGS (7)
  1. FORTEO [Suspect]
     Indication: OSTEOPOROSIS
     Dosage: 20 UG, QD
     Route: 065
     Dates: start: 20101001, end: 20110501
  2. PROCARDIA [Concomitant]
  3. ULTRACET [Concomitant]
  4. FLUOXETINE [Concomitant]
  5. FORTEO [Suspect]
     Dosage: 20 UG, QD
     Dates: start: 20110801
  6. ZOCOR [Concomitant]
  7. OMEPRAZOLE [Concomitant]

REACTIONS (4)
  - MALAISE [None]
  - DEVICE BREAKAGE [None]
  - JOINT INJURY [None]
  - BACK PAIN [None]
